FAERS Safety Report 14871121 (Version 1)
Quarter: 2018Q2

REPORT INFORMATION
  Report Type: Spontaneous
  Country: US (occurrence: US)
  Receive Date: 20180424
  Receipt Date: 20180424
  Transmission Date: 20180711
  Serious: Yes (Other)
  Sender: FDA-Public Use
  Company Number: None

PATIENT
  Age: 66 Year
  Sex: Female

DRUGS (1)
  1. FORTEO [Suspect]
     Active Substance: TERIPARATIDE
     Indication: OSTEOPOROSIS
     Route: 058
     Dates: start: 20180414

REACTIONS (10)
  - Diarrhoea [None]
  - Rhinorrhoea [None]
  - Throat tightness [None]
  - Wheezing [None]
  - Dysphagia [None]
  - Pruritus [None]
  - Injection site pain [None]
  - Chest discomfort [None]
  - Cough [None]
  - Erythema [None]

NARRATIVE: CASE EVENT DATE: 20180414
